FAERS Safety Report 21729724 (Version 3)
Quarter: 2023Q4

REPORT INFORMATION
  Report Type: Report from Study
  Country: US (occurrence: US)
  Receive Date: 20221214
  Receipt Date: 20231227
  Transmission Date: 20240110
  Serious: Yes (Hospitalization)
  Sender: FDA-Public Use
  Company Number: US-002147023-NVSC2022US289232

PATIENT
  Sex: Female

DRUGS (1)
  1. ENTRESTO [Suspect]
     Active Substance: SACUBITRIL\VALSARTAN
     Indication: Blood pressure systolic
     Dosage: 24-26 MG
     Route: 048

REACTIONS (4)
  - Cardiac failure [Unknown]
  - Viral infection [Unknown]
  - Product use issue [Unknown]
  - Product use in unapproved indication [Unknown]
